FAERS Safety Report 14480964 (Version 1)
Quarter: 2018Q1

REPORT INFORMATION
  Report Type: Spontaneous
  Country: US (occurrence: US)
  Receive Date: 20180201
  Receipt Date: 20180201
  Transmission Date: 20180509
  Serious: Yes (Other)
  Sender: FDA-Public Use
  Company Number: None

PATIENT
  Age: 69 Year
  Sex: Female
  Weight: 69.75 kg

DRUGS (17)
  1. LANTUS [Concomitant]
     Active Substance: INSULIN GLARGINE
  2. L CARNITINE [Concomitant]
     Active Substance: LEVOCARNITINE
  3. VITAMIN D3 [Concomitant]
     Active Substance: CHOLECALCIFEROL
  4. PLAQUINEL [Concomitant]
  5. COQ10 [Concomitant]
     Active Substance: UBIDECARENONE
  6. PRENATAL VITAMIN [Concomitant]
     Active Substance: VITAMINS
  7. LEFLUNOMIDE 20 MG [Suspect]
     Active Substance: LEFLUNOMIDE
     Indication: UNDIFFERENTIATED CONNECTIVE TISSUE DISEASE
     Dosage: ?          QUANTITY:1 TABLET(S);?
     Route: 048
     Dates: start: 20170201, end: 20180201
  8. LASIX [Concomitant]
     Active Substance: FUROSEMIDE
  9. KLOR [Concomitant]
  10. LEVOTHYROXINE. [Concomitant]
     Active Substance: LEVOTHYROXINE
  11. DETROL LA [Concomitant]
     Active Substance: TOLTERODINE TARTRATE
  12. FISH OIL [Concomitant]
     Active Substance: FISH OIL
  13. CYMBALTA [Concomitant]
     Active Substance: DULOXETINE HYDROCHLORIDE
  14. LOSARTAN. [Concomitant]
     Active Substance: LOSARTAN
  15. TOPROL XL [Concomitant]
     Active Substance: METOPROLOL SUCCINATE
  16. METFORMIN [Concomitant]
     Active Substance: METFORMIN HYDROCHLORIDE
  17. TURMERIC [Concomitant]
     Active Substance: HERBALS\TURMERIC

REACTIONS (2)
  - Diarrhoea [None]
  - Hypertension [None]

NARRATIVE: CASE EVENT DATE: 20180201
